FAERS Safety Report 10860111 (Version 1)
Quarter: 2015Q1

REPORT INFORMATION
  Report Type: Spontaneous
  Country: US (occurrence: US)
  Receive Date: 20150223
  Receipt Date: 20150223
  Transmission Date: 20150721
  Serious: Yes (Hospitalization)
  Sender: FDA-Public Use
  Company Number: US-CELGENEUS-163-21880-14092583

PATIENT
  Age: 71 Year
  Sex: Female

DRUGS (1)
  1. REVLIMID [Suspect]
     Active Substance: LENALIDOMIDE
     Indication: PLASMA CELL MYELOMA
     Route: 048
     Dates: start: 20121206, end: 20140910

REACTIONS (4)
  - Cystitis haemorrhagic [Unknown]
  - Gastrointestinal haemorrhage [Unknown]
  - Kidney infection [Unknown]
  - Leukopenia [Unknown]

NARRATIVE: CASE EVENT DATE: 20140909
